FAERS Safety Report 6289427-3 (Version None)
Quarter: 2009Q3

REPORT INFORMATION
  Report Type: 
  Country: None (occurrence: None)
  Receive Date: 20090727
  Receipt Date: 20090715
  Transmission Date: 20100115
  Serious: Yes (Hospitalization)
  Sender: FDA-Public Use
  Company Number: 2009AP002696

PATIENT
  Age: 68 Year
  Sex: Male

DRUGS (11)
  1. AMLODIPINE BESYLATE [Suspect]
     Indication: HYPERTENSION
     Dosage: 10 MG, PO
     Route: 048
     Dates: start: 20090422
  2. MOXONIDINE (MOXONIDINE) [Suspect]
     Indication: HYPERTENSION
     Dosage: 200 UG, PO
     Route: 048
     Dates: start: 20090505, end: 20090518
  3. ATORVASTATIN CALCIUM [Concomitant]
  4. BISOPROLOL FUMARATE [Concomitant]
  5. CETRIZINE (CETIRIZINE) [Concomitant]
  6. CITALOPRAM HYDROBROMIDE [Concomitant]
  7. CLOPIDOGREL [Concomitant]
  8. IRBESARTAN [Concomitant]
  9. LACTULOSE (LAUCTULOSE) [Concomitant]
  10. OMEPRAZOLE [Concomitant]
  11. PARACETAMOL (PARACETAMOL) [Concomitant]

REACTIONS (3)
  - CONVULSION [None]
  - GOUT [None]
  - MUSCLE SPASMS [None]
